FAERS Safety Report 8155753-6 (Version None)
Quarter: 2012Q1

REPORT INFORMATION
  Report Type: 
  Country: None (occurrence: None)
  Receive Date: 20120222
  Receipt Date: 20120215
  Transmission Date: 20120608
  Serious: Yes (Hospitalization)
  Sender: FDA-Public Use
  Company Number: FR-UCBSA-047603

PATIENT
  Age: 74 Year
  Sex: Female

DRUGS (6)
  1. LEVETIRACETAM [Concomitant]
  2. LAMOTRIGINE [Concomitant]
     Dosage: DAILY DOSE: 100 MG
     Route: 048
     Dates: start: 20110910
  3. LACOSAMIDE [Suspect]
     Dates: start: 20100324
  4. LACOSAMIDE [Suspect]
     Indication: EPILEPSY
     Route: 048
     Dates: start: 20110106
  5. FLUINDIONE [Concomitant]
     Indication: CARDIAC VALVE PROSTHESIS USER
     Dates: start: 20020101
  6. LAMOTRIGINE [Concomitant]
     Indication: EPILEPSY

REACTIONS (2)
  - ATRIAL FIBRILLATION [None]
  - BRADYCARDIA [None]
